FAERS Safety Report 8382614-X (Version None)
Quarter: 2012Q2

REPORT INFORMATION
  Report Type: 
  Country: None (occurrence: None)
  Receive Date: 20120524
  Receipt Date: 20120418
  Transmission Date: 20120825
  Serious: No
  Sender: FDA-Public Use
  Company Number: US-ALLERGAN-1202038US

PATIENT
  Age: 57 Year
  Sex: Male

DRUGS (1)
  1. OZURDEX [Suspect]
     Indication: PRODUCT USED FOR UNKNOWN INDICATION
     Dosage: UNK
     Route: 047
     Dates: start: 20120210, end: 20120210

REACTIONS (1)
  - OCULAR DISCOMFORT [None]
